FAERS Safety Report 4977260-1 (Version None)
Quarter: 2006Q2

REPORT INFORMATION
  Report Type: 
  Country: None (occurrence: None)
  Receive Date: 20060419
  Receipt Date: 20050914
  Transmission Date: 20061013
  Serious: Yes (Death, Hospitalization, Disabling)
  Sender: FDA-Public Use
  Company Number: US-MERCK-0509USA02215

PATIENT
  Age: 82 Year
  Sex: Male

DRUGS (2)
  1. VIOXX [Suspect]
     Indication: ARTHRALGIA
     Route: 048
     Dates: start: 20030101, end: 20031101
  2. VIOXX [Suspect]
     Route: 048
     Dates: start: 20030101, end: 20031101

REACTIONS (6)
  - ANOXIC ENCEPHALOPATHY [None]
  - CEREBROVASCULAR ACCIDENT [None]
  - DEATH [None]
  - MYOCARDIAL INFARCTION [None]
  - RESUSCITATION [None]
  - VENTRICULAR TACHYCARDIA [None]
